FAERS Safety Report 22593253 (Version 1)
Quarter: 2023Q2

REPORT INFORMATION
  Report Type: Spontaneous
  Country: US (occurrence: US)
  Receive Date: 20230613
  Receipt Date: 20230613
  Transmission Date: 20230722
  Serious: No
  Sender: FDA-Public Use
  Company Number: US-AUROBINDO-AUR-APL-2022-019551

PATIENT
  Sex: Male

DRUGS (1)
  1. HYDROCHLOROTHIAZIDE\OLMESARTAN MEDOXOMIL [Suspect]
     Active Substance: HYDROCHLOROTHIAZIDE\OLMESARTAN MEDOXOMIL
     Indication: Product used for unknown indication
     Dosage: UNK
     Route: 065
     Dates: start: 20220428, end: 20220518

REACTIONS (4)
  - Dyspnoea [Unknown]
  - Pain [Unknown]
  - Rash pruritic [Unknown]
  - Urticaria [Unknown]

NARRATIVE: CASE EVENT DATE: 20220504
